FAERS Safety Report 9147183 (Version 1)
Quarter: 2013Q1

REPORT INFORMATION
  Report Type: Spontaneous
  Country: US (occurrence: US)
  Receive Date: 20130307
  Receipt Date: 20130307
  Transmission Date: 20140127
  Serious: Yes (Hospitalization)
  Sender: FDA-Public Use
  Company Number: US-BAYER-2013-028280

PATIENT
  Age: 38 Year
  Sex: Female

DRUGS (7)
  1. GIANVI [Suspect]
  2. BEYAZ [Suspect]
  3. ZOLOFT [Concomitant]
     Dosage: 100 MG, DAILY
     Route: 048
  4. COPAXONE [Concomitant]
     Dosage: 20 MG, DAILY
     Route: 058
  5. CLARITIN [Concomitant]
     Dosage: 10 MG, DAILY
     Route: 048
  6. NEURONTIN [Concomitant]
     Dosage: 300 MG, TID
     Route: 048
  7. MELOXICAM [Concomitant]
     Dosage: 15 MG, UNK

REACTIONS (2)
  - Pulmonary embolism [None]
  - Deep vein thrombosis [None]
